FAERS Safety Report 5712084-9 (Version None)
Quarter: 2008Q2

REPORT INFORMATION
  Report Type: 
  Country: None (occurrence: None)
  Receive Date: 20080418
  Receipt Date: 20080407
  Transmission Date: 20081010
  Serious: Yes (Hospitalization, Other)
  Sender: FDA-Public Use
  Company Number: 2008AL002129

PATIENT
  Age: 54 Year
  Sex: Male

DRUGS (2)
  1. GABAPENTIN [Suspect]
  2. PREDNISOLONE [Concomitant]

REACTIONS (9)
  - ABDOMINAL PAIN [None]
  - DYSPHAGIA [None]
  - EYE INFECTION [None]
  - FACE OEDEMA [None]
  - FACIAL PAIN [None]
  - LARYNGEAL OEDEMA [None]
  - NAUSEA [None]
  - VENTRICULAR TACHYCARDIA [None]
  - WHEEZING [None]
